FAERS Safety Report 8321715-9 (Version None)
Quarter: 2012Q2

REPORT INFORMATION
  Report Type: 
  Country: None (occurrence: None)
  Receive Date: 20120430
  Receipt Date: 20120420
  Transmission Date: 20120825
  Serious: Yes (Hospitalization, Other)
  Sender: FDA-Public Use
  Company Number: DE-UCBSA-055869

PATIENT
  Age: 40 Year
  Sex: Female
  Weight: 52 kg

DRUGS (3)
  1. KEPPRA [Suspect]
     Indication: EPILEPSY
     Route: 048
  2. FOLIO FORTEFROM [Concomitant]
     Indication: PROPHYLAXIS OF NEURAL TUBE DEFECT
     Dosage: DAILY DSOE:0.8 MG
     Route: 048
  3. CLOMIPHENE CITRATE [Concomitant]
     Indication: INFERTILITY

REACTIONS (6)
  - PREMATURE DELIVERY [None]
  - VAGINAL INFECTION [None]
  - PREMATURE RUPTURE OF MEMBRANES [None]
  - TWIN PREGNANCY [None]
  - CERVICAL INCOMPETENCE [None]
  - PREGNANCY [None]
